FAERS Safety Report 11675480 (Version 1)
Quarter: 2015Q4

REPORT INFORMATION
  Report Type: Spontaneous
  Country: US (occurrence: US)
  Receive Date: 20151028
  Receipt Date: 20151028
  Transmission Date: 20160304
  Serious: No
  Sender: FDA-Public Use
  Company Number: US-ACTELION PHARMACEUTICALS US, INC.-A-NJ2015-126238

PATIENT
  Age: 61 Year
  Sex: Female

DRUGS (12)
  1. LIPITOR [Concomitant]
     Active Substance: ATORVASTATIN CALCIUM
  2. CLONAZEPAM. [Concomitant]
     Active Substance: CLONAZEPAM
  3. VITAMIN B12 [Concomitant]
     Active Substance: CYANOCOBALAMIN
  4. OMEPRAZOLE. [Concomitant]
     Active Substance: OMEPRAZOLE
  5. GLUCOSAMINE [Concomitant]
     Active Substance: GLUCOSAMINE
  6. OPSUMIT [Suspect]
     Active Substance: MACITENTAN
     Indication: PULMONARY ARTERIAL HYPERTENSION
     Dosage: 10 MG, UNK
     Route: 048
     Dates: start: 20150422
  7. ATROVENT [Concomitant]
     Active Substance: IPRATROPIUM BROMIDE
  8. FISH OIL [Concomitant]
     Active Substance: FISH OIL
  9. BUMETANIDE. [Concomitant]
     Active Substance: BUMETANIDE
  10. ALBUTEROL. [Concomitant]
     Active Substance: ALBUTEROL
  11. QSYMIA [Concomitant]
     Active Substance: PHENTERMINE HYDROCHLORIDE\TOPIRAMATE
  12. PHENDIMETRAZINE TARTRATE. [Concomitant]
     Active Substance: PHENDIMETRAZINE TARTRATE

REACTIONS (3)
  - Nasal congestion [Unknown]
  - Vaccination complication [Unknown]
  - Sinusitis [Unknown]

NARRATIVE: CASE EVENT DATE: 20151019
